FAERS Safety Report 12199440 (Version 1)
Quarter: 2016Q1

REPORT INFORMATION
  Report Type: Spontaneous
  Country: US (occurrence: None)
  Receive Date: 20160321
  Receipt Date: 20160321
  Transmission Date: 20160526
  Serious: Yes (Life-Threatening, Hospitalization)
  Sender: FDA-Public Use
  Company Number: None

PATIENT
  Age: 77 Year
  Sex: Male

DRUGS (2)
  1. WARFARIN 7.5 MG [Suspect]
     Active Substance: WARFARIN
     Route: 048
  2. METRONIDAZOLE 500 MG [Suspect]
     Active Substance: METRONIDAZOLE
     Route: 048

REACTIONS (3)
  - International normalised ratio increased [None]
  - Contusion [None]
  - Melaena [None]

NARRATIVE: CASE EVENT DATE: 20151105
